FAERS Safety Report 4862921-5 (Version None)
Quarter: 2005Q4

REPORT INFORMATION
  Report Type: 
  Country: None (occurrence: None)
  Receive Date: 20051219
  Receipt Date: 20051208
  Transmission Date: 20060501
  Serious: Yes (Other)
  Sender: FDA-Public Use
  Company Number: 2005144830

PATIENT
  Sex: Male

DRUGS (1)
  1. CELEBREX [Suspect]
     Indication: ARTHRALGIA
     Dosage: 200 MG
     Dates: start: 20050924

REACTIONS (3)
  - BLADDER CANCER [None]
  - CARDIAC OPERATION [None]
  - RENAL DISORDER [None]
